FAERS Safety Report 9647136 (Version 2)
Quarter: 2014Q2

REPORT INFORMATION
  Report Type: Spontaneous
  Country: US (occurrence: US)
  Receive Date: 20131027
  Receipt Date: 20140418
  Transmission Date: 20141212
  Serious: Yes (Death)
  Sender: FDA-Public Use
  Company Number: US-NAPPMUNDI-USA-2013-0105108

PATIENT
  Sex: Female

DRUGS (6)
  1. OXYCONTIN (NDA 22-272) [Suspect]
     Indication: PRODUCT USED FOR UNKNOWN INDICATION
     Dosage: NEVER PRESCRIBED BY REPORTER
     Route: 048
  2. PERCOCET                           /00867901/ [Suspect]
     Indication: PAIN
     Dosage: 7.5/325MG, 1-2 Q 4-6 HOURS
     Dates: start: 2012
  3. DIAZEPAM [Concomitant]
     Indication: PRODUCT USED FOR UNKNOWN INDICATION
  4. SOMA [Concomitant]
     Indication: PRODUCT USED FOR UNKNOWN INDICATION
  5. FLEXERIL                           /00428402/ [Concomitant]
     Indication: FIBROMYALGIA
     Dosage: 10 MG, HS
     Route: 048
     Dates: start: 2012
  6. OPIOIDS [Suspect]
     Indication: PRODUCT USED FOR UNKNOWN INDICATION
     Route: 048

REACTIONS (1)
  - Overdose [Fatal]
